FAERS Safety Report 9143118 (Version 2)
Quarter: 2013Q1

REPORT INFORMATION
  Report Type: Spontaneous
  Country: US (occurrence: US)
  Receive Date: 20130306
  Receipt Date: 20130311
  Transmission Date: 20140127
  Serious: Yes (Hospitalization, Other)
  Sender: FDA-Public Use
  Company Number: US-PURDUE-USA-2013-0099344

PATIENT
  Age: 54 Year
  Sex: Male

DRUGS (3)
  1. OXYCONTIN (NDA 22-272) [Suspect]
     Indication: BACK PAIN
     Dosage: 40 MG, TID
     Route: 048
  2. OXYCONTIN (NDA 22-272) [Suspect]
     Dosage: 80 MG, TID
     Route: 048
  3. OXYCONTIN (NDA 22-272) [Suspect]
     Dosage: 40 MG, BID
     Route: 048

REACTIONS (7)
  - Road traffic accident [Unknown]
  - Loss of consciousness [Unknown]
  - Concussion [Unknown]
  - Convulsion [Unknown]
  - Headache [Unknown]
  - Fatigue [Unknown]
  - Memory impairment [Not Recovered/Not Resolved]
